FAERS Safety Report 18678712 (Version 1)
Quarter: 2020Q4

REPORT INFORMATION
  Report Type: Spontaneous
  Country: US (occurrence: US)
  Receive Date: 20201230
  Receipt Date: 20201230
  Transmission Date: 20210114
  Serious: Yes (Hospitalization)
  Sender: FDA-Public Use
  Company Number: US-DECIPHERA PHARMACEUTICALS LLC-2020-US-000749

PATIENT
  Age: 71 Year
  Sex: Female

DRUGS (15)
  1. BENICAR HCT [Concomitant]
     Active Substance: HYDROCHLOROTHIAZIDE\OLMESARTAN MEDOXOMIL
  2. RESTASIS [Concomitant]
     Active Substance: CYCLOSPORINE
  3. ATIVAN [Concomitant]
     Active Substance: LORAZEPAM
  4. LOTEMAX [Concomitant]
     Active Substance: LOTEPREDNOL ETABONATE
  5. PREDNISONE. [Concomitant]
     Active Substance: PREDNISONE
  6. ZOFRAN [Concomitant]
     Active Substance: ONDANSETRON HYDROCHLORIDE
  7. QINLOCK [Suspect]
     Active Substance: RIPRETINIB
     Indication: PRODUCT USED FOR UNKNOWN INDICATION
     Dosage: 150 MILLIGRAM, QD
     Route: 048
     Dates: start: 20200625
  8. MYRBETRIQ [Concomitant]
     Active Substance: MIRABEGRON
  9. VITAMIN C [Concomitant]
     Active Substance: ASCORBIC ACID
  10. SYNTHROID [Concomitant]
     Active Substance: LEVOTHYROXINE SODIUM
  11. MIRAPEX [Concomitant]
     Active Substance: PRAMIPEXOLE DIHYDROCHLORIDE
  12. NORVASC [Concomitant]
     Active Substance: AMLODIPINE BESYLATE
  13. MULTIVITAMINS [Concomitant]
     Active Substance: VITAMINS
  14. AREDS [Concomitant]
     Active Substance: MINERALS\VITAMINS
  15. CALCIUM [Concomitant]
     Active Substance: CALCIUM

REACTIONS (2)
  - Kidney infection [Not Recovered/Not Resolved]
  - Sepsis [Recovered/Resolved]

NARRATIVE: CASE EVENT DATE: 20201115
